FAERS Safety Report 14992273 (Version 2)
Quarter: 2018Q3

REPORT INFORMATION
  Report Type: Spontaneous
  Country: US (occurrence: US)
  Receive Date: 20180608
  Receipt Date: 20180809
  Transmission Date: 20181010
  Serious: No
  Sender: FDA-Public Use
  Company Number: US-JNJFOC-20180535355

PATIENT
  Age: 76 Year
  Sex: Male

DRUGS (11)
  1. ECOTRIN [Concomitant]
     Active Substance: ASPIRIN
     Route: 065
  2. CALCIUM CITRATE [Concomitant]
     Active Substance: CALCIUM CITRATE
     Dosage: 950 MG
     Route: 065
  3. PRINIVIL [Concomitant]
     Active Substance: LISINOPRIL
     Route: 065
  4. THERAGRAN [Concomitant]
     Active Substance: VITAMINS
     Route: 065
  5. ZYTIGA [Suspect]
     Active Substance: ABIRATERONE ACETATE
     Indication: PROSTATE CANCER
     Route: 048
  6. NORVASC [Concomitant]
     Active Substance: AMLODIPINE BESYLATE
     Indication: HYPERTENSION
     Route: 065
  7. FLOMAX [Concomitant]
     Active Substance: TAMSULOSIN HYDROCHLORIDE
     Route: 065
  8. HYDREA [Concomitant]
     Active Substance: HYDROXYUREA
     Route: 065
  9. TOPROL XL [Concomitant]
     Active Substance: METOPROLOL SUCCINATE
     Dosage: 24 HOUR TABLET
     Route: 065
  10. ZESTRIL [Concomitant]
     Active Substance: LISINOPRIL
     Indication: HYPERTENSION
     Route: 065
  11. DELTASON [Concomitant]
     Active Substance: PREDNISONE
     Route: 065

REACTIONS (4)
  - Asthenia [Not Recovered/Not Resolved]
  - Hot flush [Not Recovered/Not Resolved]
  - Hyperhidrosis [Not Recovered/Not Resolved]
  - Fatigue [Not Recovered/Not Resolved]

NARRATIVE: CASE EVENT DATE: 201803
